FAERS Safety Report 13670839 (Version 1)
Quarter: 2017Q2

REPORT INFORMATION
  Report Type: Spontaneous
  Country: US (occurrence: US)
  Receive Date: 20170620
  Receipt Date: 20170620
  Transmission Date: 20170830
  Serious: No
  Sender: FDA-Public Use
  Company Number: US-ROCHE-1045728

PATIENT
  Sex: Female

DRUGS (2)
  1. XELODA [Suspect]
     Active Substance: CAPECITABINE
     Route: 065
  2. XELODA [Suspect]
     Active Substance: CAPECITABINE
     Indication: PRODUCT USED FOR UNKNOWN INDICATION
     Route: 065

REACTIONS (16)
  - Paraesthesia [Unknown]
  - Asthenia [Unknown]
  - Feeling drunk [Unknown]
  - Dysgeusia [Unknown]
  - Dizziness [Unknown]
  - Headache [Unknown]
  - Fatigue [Unknown]
  - Unevaluable event [Unknown]
  - Balance disorder [Unknown]
  - Thinking abnormal [Unknown]
  - Dysarthria [Unknown]
  - Thirst [Unknown]
  - Somnolence [Unknown]
  - Migraine [Unknown]
  - Disturbance in attention [Unknown]
  - Gait disturbance [Unknown]
